FAERS Safety Report 7229621-8 (Version None)
Quarter: 2011Q1

REPORT INFORMATION
  Report Type: 
  Country: None (occurrence: None)
  Receive Date: 20110117
  Receipt Date: 20110113
  Transmission Date: 20110831
  Serious: Yes (Life-Threatening)
  Sender: FDA-Public Use
  Company Number: FR-JNJFOC-20110103319

PATIENT
  Sex: Male

DRUGS (13)
  1. RISPERDAL [Suspect]
     Route: 048
  2. RISPERDAL [Suspect]
     Route: 048
  3. RISPERDAL [Suspect]
     Route: 048
  4. SEROPLEX [Concomitant]
     Indication: DEPRESSION
     Route: 048
  5. RISPERDAL [Suspect]
     Indication: PERSECUTORY DELUSION
     Route: 048
  6. ZYPREXA [Suspect]
     Indication: PERSECUTORY DELUSION
     Route: 048
  7. TERCIAN [Suspect]
     Indication: PERSECUTORY DELUSION
     Route: 048
  8. LOXAPAC [Suspect]
     Indication: PERSECUTORY DELUSION
     Route: 048
  9. LEPTICUR [Concomitant]
     Indication: EXTRAPYRAMIDAL DISORDER
     Route: 048
  10. LEPTICUR [Concomitant]
     Route: 048
  11. FORLAX [Concomitant]
     Route: 065
  12. IMOVANE [Concomitant]
     Route: 065
  13. RISPERDAL CONSTA [Suspect]
     Indication: PERSECUTORY DELUSION
     Route: 030

REACTIONS (4)
  - ISCHAEMIC STROKE [None]
  - LEFT VENTRICULAR HYPERTROPHY [None]
  - PSYCHIATRIC DECOMPENSATION [None]
  - TREATMENT NONCOMPLIANCE [None]
